FAERS Safety Report 22039483 (Version 1)
Quarter: 2023Q1

REPORT INFORMATION
  Report Type: Spontaneous
  Country: US (occurrence: None)
  Receive Date: 20230223
  Receipt Date: 20230223
  Transmission Date: 20230417
  Serious: No
  Sender: FDA-Public Use
  Company Number: None

PATIENT

DRUGS (1)
  1. TEPROTUMUMAB [Suspect]
     Active Substance: TEPROTUMUMAB

REACTIONS (7)
  - Deafness [None]
  - Ear discomfort [None]
  - Balance disorder [None]
  - Muscle spasms [None]
  - Ear haemorrhage [None]
  - Tympanic membrane perforation [None]
  - Infusion related reaction [None]
